FAERS Safety Report 18580352 (Version 1)
Quarter: 2020Q4

REPORT INFORMATION
  Report Type: Report from Study
  Country: US (occurrence: US)
  Receive Date: 20201204
  Receipt Date: 20201204
  Transmission Date: 20210114
  Serious: Yes (Other)
  Sender: FDA-Public Use
  Company Number: US-SUN PHARMACEUTICAL INDUSTRIES LTD-2020R1-269912

PATIENT
  Age: 43 Year
  Sex: Male

DRUGS (1)
  1. BUPRENORPHINE. [Suspect]
     Active Substance: BUPRENORPHINE
     Indication: PRODUCT USED FOR UNKNOWN INDICATION
     Dosage: 8 MG DAILY, 4 MG NIGHTLY
     Route: 065

REACTIONS (6)
  - Drug ineffective [Unknown]
  - Tachycardia [Unknown]
  - Confusional state [Unknown]
  - Insomnia [Unknown]
  - Off label use [Unknown]
  - Hallucination, auditory [Recovered/Resolved]
